FAERS Safety Report 20323718 (Version 1)
Quarter: 2022Q1

REPORT INFORMATION
  Report Type: Report from Study
  Country: CA (occurrence: CA)
  Receive Date: 20220111
  Receipt Date: 20220111
  Transmission Date: 20220424
  Serious: Yes (Death, Other)
  Sender: FDA-Public Use
  Company Number: CA-PFIZER INC-202200019532

PATIENT
  Age: 66 Year
  Sex: Female

DRUGS (3)
  1. AXITINIB [Suspect]
     Active Substance: AXITINIB
     Route: 065
  2. PEMBROLIZUMAB [Suspect]
     Active Substance: PEMBROLIZUMAB
     Indication: Metastatic renal cell carcinoma
     Dosage: 200 MG 1 EVERY 3 WEEKS
     Route: 042
  3. PEMBROLIZUMAB [Suspect]
     Active Substance: PEMBROLIZUMAB
     Indication: Metastatic renal cell carcinoma
     Dosage: 200 MG 1 EVERY 3 WEEKS
     Route: 042

REACTIONS (7)
  - Death [Fatal]
  - Musculoskeletal disorder [Fatal]
  - Arthropathy [Fatal]
  - Cancer pain [Fatal]
  - Device related infection [Fatal]
  - Post procedural complication [Fatal]
  - Neoplasm progression [Fatal]
